FAERS Safety Report 13659890 (Version 1)
Quarter: 2017Q2

REPORT INFORMATION
  Report Type: Spontaneous
  Country: US (occurrence: US)
  Receive Date: 20170616
  Receipt Date: 20170616
  Transmission Date: 20170830
  Serious: No
  Sender: FDA-Public Use
  Company Number: US-ALLERGAN-1715144US

PATIENT
  Age: 20 Year
  Sex: Female
  Weight: 77.55 kg

DRUGS (1)
  1. LILETTA [Suspect]
     Active Substance: LEVONORGESTREL
     Indication: CONTRACEPTION
     Dosage: 52 MILLIGRAMS
     Route: 015
     Dates: start: 20161223, end: 20170411

REACTIONS (3)
  - Uterine spasm [Unknown]
  - Uterine haemorrhage [Unknown]
  - Device expulsion [Recovered/Resolved]

NARRATIVE: CASE EVENT DATE: 20170407
